FAERS Safety Report 9148820 (Version 1)
Quarter: 2013Q1

REPORT INFORMATION
  Report Type: Spontaneous
  Country: AU (occurrence: AU)
  Receive Date: 20130308
  Receipt Date: 20130308
  Transmission Date: 20140127
  Serious: Yes (Life-Threatening, Other)
  Sender: FDA-Public Use
  Company Number: AU-UCBSA-078274

PATIENT
  Age: 55 Year
  Sex: Male

DRUGS (5)
  1. VIMPAT [Suspect]
     Indication: EPILEPSY
     Dosage: DAILY DOSE-200 MG
     Route: 048
     Dates: start: 20111209, end: 20120205
  2. LEVETIRACETAM [Concomitant]
     Dosage: 1000 MG 2 TIMES
     Route: 048
  3. KELP [Concomitant]
     Route: 048
  4. MULTIVITAMINS [Concomitant]
  5. CARBAMAZEPINE [Concomitant]
     Dosage: 50 MG ONE TIME
     Route: 048

REACTIONS (3)
  - Suicidal ideation [Not Recovered/Not Resolved]
  - Suicide attempt [Not Recovered/Not Resolved]
  - Withdrawal syndrome [Not Recovered/Not Resolved]
